FAERS Safety Report 24625098 (Version 2)
Quarter: 2025Q3

REPORT INFORMATION
  Report Type: Spontaneous
  Country: JP (occurrence: JP)
  Receive Date: 20241115
  Receipt Date: 20250810
  Transmission Date: 20251021
  Serious: Yes (Death, Other)
  Sender: ALEXION PHARMACEUTICALS
  Company Number: JP-ASTRAZENECA-240120762_064320_P_1

PATIENT
  Age: 77 Year
  Sex: Female

DRUGS (3)
  1. ANDEXXA [Suspect]
     Active Substance: ANDEXANET ALFA
     Indication: Hepatic haemorrhage
  2. ELIQUIS [Concomitant]
     Active Substance: APIXABAN
  3. FIBRINOGEN HUMAN [Concomitant]
     Active Substance: FIBRINOGEN HUMAN
     Route: 065

REACTIONS (2)
  - Death [Fatal]
  - General physical health deterioration [Unknown]
